FAERS Safety Report 10585288 (Version 1)
Quarter: 2014Q4

REPORT INFORMATION
  Report Type: Spontaneous
  Country: FR (occurrence: None)
  Receive Date: 20141113
  Receipt Date: 20141113
  Transmission Date: 20150529
  Serious: Yes (Hospitalization)
  Sender: FDA-Public Use
  Company Number: COR_00144_2014

PATIENT
  Age: 50 Year
  Sex: Female

DRUGS (4)
  1. PAROXETINE [Concomitant]
     Active Substance: PAROXETINE\PAROXETINE HYDROCHLORIDE
  2. PACLITAXEL (PACLITAXEL) [Suspect]
     Active Substance: PACLITAXEL
     Indication: MALIGNANT PERITONEAL NEOPLASM
     Dosage: 4 CYCLES
  3. CARBOPLATIN. [Suspect]
     Active Substance: CARBOPLATIN
     Indication: MALIGNANT PERITONEAL NEOPLASM
     Dosage: 6 CYCLES
  4. LEVOTHYROXINE [Concomitant]
     Active Substance: LEVOTHYROXINE

REACTIONS (15)
  - Neurotoxicity [None]
  - Hypotension [None]
  - Abdominal pain [None]
  - Confusional state [None]
  - Hypothermia [None]
  - Mitochondrial cytopathy [None]
  - Dyspnoea [None]
  - Ascites [None]
  - Acute kidney injury [None]
  - Fluid overload [None]
  - Tachycardia [None]
  - Tachypnoea [None]
  - Hepatic failure [None]
  - Asthenia [None]
  - Mitochondrial toxicity [None]
